FAERS Safety Report 17842792 (Version 2)
Quarter: 2020Q2

REPORT INFORMATION
  Report Type: Report from Study
  Country: ES (occurrence: ES)
  Receive Date: 20200530
  Receipt Date: 20200605
  Transmission Date: 20200714
  Serious: Yes (Hospitalization)
  Sender: FDA-Public Use
  Company Number: NVSC2020ES145243

PATIENT
  Age: 32 Year
  Sex: Female
  Weight: 76 kg

DRUGS (2)
  1. BYL719 [Suspect]
     Active Substance: ALPELISIB
     Indication: PIK3CA-ACTIVATED MUTATION
     Dosage: 300 MG
     Route: 048
     Dates: start: 20200506, end: 20200516
  2. BYL719 [Suspect]
     Active Substance: ALPELISIB
     Dosage: 300 MG
     Route: 065
     Dates: start: 20200525

REACTIONS (2)
  - Infection [Unknown]
  - Pyrexia [Recovered/Resolved]

NARRATIVE: CASE EVENT DATE: 20200514
